FAERS Safety Report 6179081-3 (Version None)
Quarter: 2009Q2

REPORT INFORMATION
  Report Type: 
  Country: None (occurrence: None)
  Receive Date: 20090430
  Receipt Date: 20090419
  Transmission Date: 20091009
  Serious: Yes (Other)
  Sender: FDA-Public Use
  Company Number: CHPA2009US09552

PATIENT
  Age: 39 Year
  Sex: Female
  Weight: 61.2 kg

DRUGS (2)
  1. THERAFLU NIGHTTIME SEVERE COLD WARMING SYRUP (NCH) (PARACETAMOL, DIPHE [Suspect]
     Indication: NASOPHARYNGITIS
     Dosage: 3 TSP, QD, ORAL
     Route: 048
     Dates: start: 20090413, end: 20090413
  2. LAMICTAL [Concomitant]

REACTIONS (1)
  - CONVULSION [None]
